FAERS Safety Report 7045235-7 (Version None)
Quarter: 2010Q4

REPORT INFORMATION
  Report Type: 
  Country: None (occurrence: None)
  Receive Date: 20101008
  Receipt Date: 20101008
  Transmission Date: 20110411
  Serious: No
  Sender: FDA-Public Use
  Company Number: None

PATIENT
  Age: 75 Year
  Sex: Female
  Weight: 77.1115 kg

DRUGS (1)
  1. AMLODIPINE [Suspect]
     Dosage: 5 MG DAILY MOUTH
     Route: 048
     Dates: start: 20100105

REACTIONS (3)
  - ARTHRALGIA [None]
  - JOINT SWELLING [None]
  - SKIN TIGHTNESS [None]
